FAERS Safety Report 6983856-8 (Version None)
Quarter: 2010Q3

REPORT INFORMATION
  Report Type: 
  Country: None (occurrence: None)
  Receive Date: 20100914
  Receipt Date: 20090227
  Transmission Date: 20110219
  Serious: No
  Sender: FDA-Public Use
  Company Number: US-WYE-H08418409

PATIENT
  Age: 49 Year
  Sex: Female
  Weight: 90.8 kg

DRUGS (1)
  1. ADVIL LIQUI-GELS [Suspect]
     Indication: DYSMENORRHOEA
     Dosage: 2-4 TABLETS EVERY 6,8 AND 12 HOURS
     Route: 048
     Dates: start: 20060101

REACTIONS (3)
  - HEADACHE [None]
  - NECK PAIN [None]
  - OVERDOSE [None]
